FAERS Safety Report 5278136-5 (Version None)
Quarter: 2007Q1

REPORT INFORMATION
  Report Type: 
  Country: None (occurrence: None)
  Receive Date: 20061213
  Receipt Date: 20040824
  Transmission Date: 20070707
  Serious: Yes (Hospitalization)
  Sender: FDA-Public Use
  Company Number: 2004UW17943

PATIENT
  Age: 81 Year
  Sex: Male

DRUGS (2)
  1. SEROQUEL [Suspect]
     Dosage: 25 TO 50 MG
  2. DEPAKOTE [Concomitant]

REACTIONS (1)
  - CONVULSION [None]
